FAERS Safety Report 12001588 (Version 1)
Quarter: 2016Q1

REPORT INFORMATION
  Report Type: Spontaneous
  Country: US (occurrence: US)
  Receive Date: 20160204
  Receipt Date: 20160204
  Transmission Date: 20160526
  Serious: No
  Sender: FDA-Public Use
  Company Number: US-PERRIGO-15US000142

PATIENT
  Age: 34 Year
  Sex: Female
  Weight: 61.22 kg

DRUGS (5)
  1. IBUPROFEN. [Suspect]
     Active Substance: IBUPROFEN
     Indication: NASOPHARYNGITIS
     Dosage: 400 MG FOLLOWED BY 200 MG FOUR HOURS LATER
     Route: 048
     Dates: start: 20141223, end: 20141223
  2. IBUPROFEN. [Suspect]
     Active Substance: IBUPROFEN
     Dosage: TOTAL OF 600 MG TO 800 MG, UNKNOWN
     Route: 048
     Dates: start: 20141229, end: 20141229
  3. IBUPROFEN. [Suspect]
     Active Substance: IBUPROFEN
     Dosage: TOTAL OF 600 MG TO 800 MG, UNKNOWN
     Route: 048
     Dates: start: 20141227, end: 20141227
  4. IBUPROFEN. [Suspect]
     Active Substance: IBUPROFEN
     Dosage: TOTAL OF 600 MG TO 800 MG, QD
     Route: 048
     Dates: start: 20141224, end: 20141225
  5. IBUPROFEN. [Suspect]
     Active Substance: IBUPROFEN
     Dosage: 200 MG, SINGLE
     Route: 048
     Dates: start: 20141230, end: 20141230

REACTIONS (3)
  - Pruritus [Not Recovered/Not Resolved]
  - Insomnia [Not Recovered/Not Resolved]
  - Rash [Recovering/Resolving]

NARRATIVE: CASE EVENT DATE: 20141223
